FAERS Safety Report 23267337 (Version 1)
Quarter: 2023Q4

REPORT INFORMATION
  Report Type: Spontaneous
  Country: US (occurrence: US)
  Receive Date: 20231206
  Receipt Date: 20231206
  Transmission Date: 20240109
  Serious: No
  Sender: FDA-Public Use
  Company Number: US-ABBVIE-5526093

PATIENT
  Sex: Male

DRUGS (1)
  1. CREON [Suspect]
     Active Substance: PANCRELIPASE AMYLASE\PANCRELIPASE LIPASE\PANCRELIPASE PROTEASE
     Indication: Pancreatic failure
     Dosage: CREON 36,000 LIPASE UNITS, 2 WITH A MEAL, 1 WITH A SNACK
     Route: 048
     Dates: start: 202311, end: 20231130

REACTIONS (1)
  - Dysuria [Unknown]

NARRATIVE: CASE EVENT DATE: 20231101
